FAERS Safety Report 7105991-6 (Version None)
Quarter: 2010Q4

REPORT INFORMATION
  Report Type: 
  Country: None (occurrence: None)
  Receive Date: 20101116
  Receipt Date: 20101001
  Transmission Date: 20110411
  Serious: No
  Sender: FDA-Public Use
  Company Number: US-BAYER-201021997BCC

PATIENT
  Age: 48 Year
  Sex: Male
  Weight: 135 kg

DRUGS (3)
  1. ALEVE (CAPLET) [Suspect]
     Indication: PRODUCT USED FOR UNKNOWN INDICATION
     Dosage: CONSUMER REPORTED THAT HE TOOK ALEVE DAILY FOR PAST COUPLE WEEKS. BOTTLE COUNT 100CT.
     Route: 048
  2. MOTRIN [Concomitant]
     Route: 065
  3. FLEXERIL [Concomitant]
     Route: 065

REACTIONS (1)
  - BLOOD PRESSURE INCREASED [None]
